FAERS Safety Report 6942878-3 (Version None)
Quarter: 2010Q3

REPORT INFORMATION
  Report Type: 
  Country: None (occurrence: None)
  Receive Date: 20100824
  Receipt Date: 20100824
  Transmission Date: 20110219
  Serious: Yes (Disabling)
  Sender: FDA-Public Use
  Company Number: None

PATIENT
  Sex: Female
  Weight: 86.1834 kg

DRUGS (2)
  1. LOVASTATIN [Suspect]
     Indication: BLOOD CHOLESTEROL
     Dosage: 40MG/DAY NIGHTLY
     Dates: start: 20090902, end: 20100625
  2. LOVASTATIN [Suspect]
     Indication: CARDIAC DISORDER
     Dosage: 40MG/DAY NIGHTLY
     Dates: start: 20090902, end: 20100625

REACTIONS (3)
  - GAIT DISTURBANCE [None]
  - MUSCULAR WEAKNESS [None]
  - MYALGIA [None]
